FAERS Safety Report 6387808-0 (Version None)
Quarter: 2009Q4

REPORT INFORMATION
  Report Type: 
  Country: None (occurrence: None)
  Receive Date: 20091005
  Receipt Date: 20090930
  Transmission Date: 20100525
  Serious: Yes (Death, Hospitalization)
  Sender: FDA-Public Use
  Company Number: HOAFF7334

PATIENT
  Age: 3 Month
  Sex: Male
  Weight: 4 kg

DRUGS (2)
  1. LOPERAMIDE [Suspect]
     Route: 048
  2. LOPERAMIDE [Suspect]
     Indication: DIARRHOEA
     Route: 048

REACTIONS (7)
  - ABDOMINAL DISTENSION [None]
  - CONSTIPATION [None]
  - DEATH [None]
  - ILEUS [None]
  - INTENTIONAL DRUG MISUSE [None]
  - RESPIRATORY DISTRESS [None]
  - SOMNOLENCE [None]
